FAERS Safety Report 7401434-3 (Version None)
Quarter: 2011Q2

REPORT INFORMATION
  Report Type: 
  Country: None (occurrence: None)
  Receive Date: 20110407
  Receipt Date: 20110325
  Transmission Date: 20111010
  Serious: Yes (Other)
  Sender: FDA-Public Use
  Company Number: FR-MYLANLABS-2011S1006195

PATIENT
  Age: 82 Year
  Sex: Male

DRUGS (1)
  1. VANCOMYCINE [Suspect]
     Indication: DEVICE RELATED INFECTION
     Route: 042
     Dates: start: 20110114, end: 20110115

REACTIONS (5)
  - TACHYCARDIA [None]
  - FEELING HOT [None]
  - TACHYPNOEA [None]
  - ERYTHEMA [None]
  - PRURITUS [None]
